FAERS Safety Report 14616648 (Version 2)
Quarter: 2018Q1

REPORT INFORMATION
  Report Type: Report from Study
  Country: IT (occurrence: IT)
  Receive Date: 20180309
  Receipt Date: 20180315
  Transmission Date: 20180509
  Serious: Yes (Hospitalization)
  Sender: FDA-Public Use
  Company Number: IT-ACCORD-064391

PATIENT
  Age: 71 Year
  Sex: Male

DRUGS (1)
  1. DOCETAXEL ACCORD HEALTH CARE LIMITED [Suspect]
     Active Substance: DOCETAXEL
     Indication: LUNG NEOPLASM MALIGNANT
     Dosage: STRENGTH:20 MG/1 ML
     Dates: start: 20171023, end: 20171128

REACTIONS (2)
  - Normocytic anaemia [Recovered/Resolved]
  - Pneumonia [Recovered/Resolved]

NARRATIVE: CASE EVENT DATE: 20171202
